FAERS Safety Report 10570914 (Version 1)
Quarter: 2014Q4

REPORT INFORMATION
  Report Type: Spontaneous
  Country: US (occurrence: US)
  Receive Date: 20141107
  Receipt Date: 20141107
  Transmission Date: 20150529
  Serious: Yes (Other)
  Sender: FDA-Public Use
  Company Number: US-ELI_LILLY_AND_COMPANY-US201410010503

PATIENT
  Age: 48 Year
  Sex: Female

DRUGS (1)
  1. CYMBALTA [Suspect]
     Active Substance: DULOXETINE HYDROCHLORIDE
     Indication: FIBROMYALGIA
     Dosage: UNK, UNKNOWN
     Route: 065
     Dates: start: 2004, end: 201308

REACTIONS (18)
  - Nightmare [Unknown]
  - Logorrhoea [Unknown]
  - Dry mouth [Unknown]
  - Insomnia [Unknown]
  - Crying [Unknown]
  - Feeling abnormal [Unknown]
  - Panic attack [Unknown]
  - Fibromyalgia [Unknown]
  - Dyskinesia [Unknown]
  - Photosensitivity reaction [Unknown]
  - Depression [Unknown]
  - Arthralgia [Unknown]
  - Screaming [Unknown]
  - Conversion disorder [Unknown]
  - Tinnitus [Unknown]
  - Drug withdrawal syndrome [Unknown]
  - Tremor [Unknown]
  - Intentional product misuse [Unknown]

NARRATIVE: CASE EVENT DATE: 201308
